FAERS Safety Report 6417230-X (Version None)
Quarter: 2009Q4

REPORT INFORMATION
  Report Type: 
  Country: None (occurrence: None)
  Receive Date: 20091028
  Receipt Date: 20091019
  Transmission Date: 20100525
  Serious: No
  Sender: FDA-Public Use
  Company Number: US-JNJFOC-20091006434

PATIENT
  Sex: Female
  Weight: 98.88 kg

DRUGS (15)
  1. FENTANYL-100 [Suspect]
     Route: 062
  2. FENTANYL-100 [Suspect]
     Indication: COMPLEX REGIONAL PAIN SYNDROME
     Route: 062
  3. GLYBURIDE [Concomitant]
     Route: 048
  4. GLYBURIDE [Concomitant]
     Indication: DIABETES MELLITUS
     Dosage: 5 MG 2 TABLETS IN THE MORNING
     Route: 048
  5. INDERAL [Concomitant]
     Indication: TREMOR
     Route: 048
  6. LASIX [Concomitant]
     Route: 048
  7. COMPAZINE [Concomitant]
     Indication: NAUSEA
     Route: 048
  8. VALIUM [Concomitant]
     Route: 048
  9. PERINDOPRIL [Concomitant]
     Indication: BLOOD PRESSURE
     Route: 048
  10. ZIAC [Concomitant]
     Indication: BLOOD PRESSURE
     Route: 048
  11. HALCION [Concomitant]
     Indication: SLEEP DISORDER
     Route: 048
  12. METHADONE HYDROCHLORIDE [Concomitant]
     Indication: PAIN
     Route: 048
  13. FLEXERIL [Concomitant]
     Indication: MUSCLE RELAXANT THERAPY
     Route: 048
  14. PREVACID [Concomitant]
     Indication: HERNIA
     Route: 048
  15. JANUMET [Concomitant]
     Indication: DIABETES MELLITUS
     Route: 048

REACTIONS (3)
  - PRODUCT ADHESION ISSUE [None]
  - SEDATION [None]
  - WRONG TECHNIQUE IN DRUG USAGE PROCESS [None]
